FAERS Safety Report 9437682 (Version 1)
Quarter: 2013Q3

REPORT INFORMATION
  Report Type: Spontaneous
  Country: DE (occurrence: DE)
  Receive Date: 20130802
  Receipt Date: 20130802
  Transmission Date: 20140515
  Serious: Yes (Other)
  Sender: FDA-Public Use
  Company Number: DE-TEVA-420590GER

PATIENT
  Age: 1 Day
  Sex: Female
  Weight: 1.79 kg

DRUGS (4)
  1. METOPROLOL [Suspect]
     Route: 064
  2. NEPRESOL [Suspect]
     Route: 064
  3. PRESINOL [Concomitant]
     Route: 064
  4. FOLS?URE [Concomitant]
     Route: 064

REACTIONS (2)
  - Small for dates baby [Recovered/Resolved]
  - Vomiting neonatal [Recovered/Resolved]
